FAERS Safety Report 21407048 (Version 1)
Quarter: 2022Q4

REPORT INFORMATION
  Report Type: Spontaneous
  Country: US (occurrence: None)
  Receive Date: 20221003
  Receipt Date: 20221003
  Transmission Date: 20230113
  Serious: No
  Sender: FDA-Public Use
  Company Number: None

PATIENT
  Age: 76 Year
  Sex: Male
  Weight: 76.5 kg

DRUGS (2)
  1. FAMILY CARE CLOTRIMAZOLE ANTI-FUNGAL CREAM 1% [Suspect]
     Active Substance: CLOTRIMAZOLE
     Indication: Fungal infection
     Route: 061
     Dates: start: 20220830, end: 20220913
  2. Kirkland Mature Multi [Concomitant]

REACTIONS (2)
  - Allergic reaction to excipient [None]
  - Product substitution issue [None]

NARRATIVE: CASE EVENT DATE: 20220829
